FAERS Safety Report 18119664 (Version 1)
Quarter: 2020Q3

REPORT INFORMATION
  Report Type: Spontaneous
  Country: US (occurrence: US)
  Receive Date: 20200806
  Receipt Date: 20200806
  Transmission Date: 20201103
  Serious: No
  Sender: FDA-Public Use
  Company Number: US-PFIZER INC-2020295085

PATIENT
  Age: 77 Year
  Sex: Male
  Weight: 92.99 kg

DRUGS (2)
  1. FLECTOR [Suspect]
     Active Substance: DICLOFENAC EPOLAMINE
     Indication: BACK PAIN
     Dosage: PLACES PATCH ON LOWER BACK IN THE MORNING FOR 12 HOURS AND REMOVES BEFORE BEDTIME
     Dates: start: 202003
  2. SALONPAS LIDOCAINE [Concomitant]
     Indication: BACK PAIN
     Dosage: UNK (4% LIDOCAINE PATCH, PLACED ON LOWER BACK FOR 12 HOURS AND REMOVED BEFORE BEDTIME)

REACTIONS (1)
  - Discomfort [Unknown]

NARRATIVE: CASE EVENT DATE: 202003
